FAERS Safety Report 10395160 (Version 1)
Quarter: 2014Q1

REPORT INFORMATION
  Report Type: Spontaneous
  Country: US (occurrence: None)
  Receive Date: 20130314
  Receipt Date: 20130314
  Transmission Date: 20141002
  Serious: Yes (Other)
  Sender: FDA-Public Use
  Company Number: 1201USA02607

PATIENT
  Sex: Female

DRUGS (2)
  1. IVEMEND (FOSAPREPITANT DIMEGLUMINE) INJECTION [Suspect]
     Indication: PROPHYLAXIS OF NAUSEA AND VOMITING
     Route: 042
     Dates: start: 20120105
  2. FLUOROURACIL (+) LEUCOVORIN CALCIUM (+) OXALIPLATIN [Concomitant]

REACTIONS (2)
  - Dyspnoea [None]
  - Flushing [None]
